FAERS Safety Report 6499126-0 (Version None)
Quarter: 2009Q4

REPORT INFORMATION
  Report Type: 
  Country: None (occurrence: None)
  Receive Date: 20091127
  Receipt Date: 20090909
  Transmission Date: 20100525
  Serious: Yes (Other)
  Sender: FDA-Public Use
  Company Number: WAES 0909USA01148

PATIENT
  Sex: Female

DRUGS (2)
  1. FOSAMAX [Suspect]
     Dosage: 10 MG/DAILY/PO 70 MG/WKY/PO
     Route: 048
     Dates: start: 20000901, end: 20070901
  2. FOSAMAX [Suspect]
     Dosage: 10 MG/DAILY/PO 70 MG/WKY/PO
     Route: 048
     Dates: start: 20070901, end: 20090819

REACTIONS (2)
  - OSTEONECROSIS [None]
  - TOOTH DISORDER [None]
